FAERS Safety Report 20038095 (Version 2)
Quarter: 2021Q4

REPORT INFORMATION
  Report Type: Spontaneous
  Country: US (occurrence: US)
  Receive Date: 20211105
  Receipt Date: 20211117
  Transmission Date: 20220303
  Serious: Yes (Hospitalization, Other)
  Sender: FDA-Public Use
  Company Number: US-Blueprint Medicines Corporation-SP-US-2021-001850

PATIENT
  Age: 82 Year
  Sex: Male

DRUGS (1)
  1. AYVAKIT [Suspect]
     Active Substance: AVAPRITINIB
     Indication: Systemic mastocytosis
     Route: 048
     Dates: start: 20210915

REACTIONS (6)
  - Adverse reaction [Recovering/Resolving]
  - Mental impairment [Unknown]
  - Fall [Unknown]
  - Diarrhoea [Unknown]
  - Constipation [Unknown]
  - Fatigue [Unknown]
